FAERS Safety Report 12873163 (Version 1)
Quarter: 2016Q4

REPORT INFORMATION
  Report Type: Report from Study
  Country: US (occurrence: US)
  Receive Date: 20161021
  Receipt Date: 20161021
  Transmission Date: 20170207
  Serious: Yes (Other)
  Sender: FDA-Public Use
  Company Number: US-ROCHE-1842272

PATIENT
  Age: 93 Year
  Sex: Male
  Weight: 62.65 kg

DRUGS (7)
  1. ESBRIET [Suspect]
     Active Substance: PIRFENIDONE
     Dosage: 2 CAPSULE 3 TIMES PER DAY
     Route: 048
     Dates: start: 20160926
  2. VENTOLIN [Concomitant]
     Active Substance: ALBUTEROL SULFATE
  3. MUCINEX [Concomitant]
     Active Substance: GUAIFENESIN
  4. ESBRIET [Suspect]
     Active Substance: PIRFENIDONE
     Dosage: 3 CAPSULE 3 TIMES PER DAY
     Route: 048
     Dates: start: 20160923, end: 20160925
  5. ESBRIET [Suspect]
     Active Substance: PIRFENIDONE
     Indication: IDIOPATHIC PULMONARY FIBROSIS
     Dosage: 1 CAPSULE 3 TIMES PER DAY
     Route: 048
     Dates: start: 20160909, end: 20160915
  6. ESBRIET [Suspect]
     Active Substance: PIRFENIDONE
     Dosage: 2 CAPSULE 3 TIMES PER DAY
     Route: 048
     Dates: start: 20160916, end: 20160922
  7. OXYGEN. [Concomitant]
     Active Substance: OXYGEN
     Indication: IDIOPATHIC PULMONARY FIBROSIS

REACTIONS (14)
  - Headache [Recovering/Resolving]
  - Carbon dioxide increased [Unknown]
  - Somnolence [Recovered/Resolved with Sequelae]
  - Fatigue [Not Recovered/Not Resolved]
  - Ill-defined disorder [Not Recovered/Not Resolved]
  - Asthenia [Not Recovered/Not Resolved]
  - Nausea [Recovering/Resolving]
  - Decreased appetite [Not Recovered/Not Resolved]
  - Chromaturia [Recovering/Resolving]
  - Laziness [Recovered/Resolved with Sequelae]
  - Listless [Not Recovered/Not Resolved]
  - Abdominal pain upper [Recovered/Resolved with Sequelae]
  - Weight gain poor [Not Recovered/Not Resolved]
  - Hypoacusis [Not Recovered/Not Resolved]

NARRATIVE: CASE EVENT DATE: 20160909
